FAERS Safety Report 6866403-0 (Version None)
Quarter: 2010Q3

REPORT INFORMATION
  Report Type: 
  Country: None (occurrence: None)
  Receive Date: 20100722
  Receipt Date: 20100720
  Transmission Date: 20110219
  Serious: Yes (Death, Hospitalization, Other)
  Sender: FDA-Public Use
  Company Number: FR-BRISTOL-MYERS SQUIBB COMPANY-15178171

PATIENT
  Age: 89 Year
  Sex: Male

DRUGS (4)
  1. AXEPIM INJ [Suspect]
     Indication: DEVICE RELATED INFECTION
     Dosage: REDUCED AT 2 G/D.
     Route: 042
     Dates: start: 20100515, end: 20100621
  2. CIFLOX [Suspect]
     Indication: DEVICE RELATED INFECTION
     Dosage: REDUCED AT 500 MG/D
     Dates: start: 20100515
  3. VANCOMYCIN [Suspect]
     Indication: DEVICE RELATED INFECTION
     Dates: start: 20100514
  4. GENTAMICIN SULFATE [Suspect]
     Indication: DEVICE RELATED INFECTION
     Dates: start: 20100514

REACTIONS (4)
  - FALL [None]
  - HAEMATOMA [None]
  - MULTI-ORGAN FAILURE [None]
  - RENAL FAILURE [None]
